FAERS Safety Report 20790905 (Version 1)
Quarter: 2022Q2

REPORT INFORMATION
  Report Type: Spontaneous
  Country: SA (occurrence: SA)
  Receive Date: 20220505
  Receipt Date: 20220505
  Transmission Date: 20220721
  Serious: Yes (Death, Other)
  Sender: FDA-Public Use
  Company Number: SA-CELGENE-SAU-20210607895

PATIENT
  Age: 77 Year
  Sex: Male

DRUGS (2)
  1. AZACITIDINE [Suspect]
     Active Substance: AZACITIDINE
     Indication: Chronic leukaemia
     Dosage: FREQUENCY TEXT: NOT PROVIDED
     Route: 065
  2. HYDROXYUREA [Suspect]
     Active Substance: HYDROXYUREA
     Indication: Chronic leukaemia
     Route: 065

REACTIONS (2)
  - Febrile neutropenia [Fatal]
  - Bone marrow failure [Fatal]
